FAERS Safety Report 4577508-1 (Version None)
Quarter: 2005Q1

REPORT INFORMATION
  Report Type: 
  Country: None (occurrence: None)
  Receive Date: 20050208
  Receipt Date: 20050126
  Transmission Date: 20050727
  Serious: Yes (Other)
  Sender: FDA-Public Use
  Company Number: 2005020606

PATIENT
  Age: 45 Year
  Sex: Female

DRUGS (8)
  1. ZYRTEC [Suspect]
     Indication: URTICARIA
     Dosage: 10 MG (DAILY), ORAL
     Route: 048
     Dates: start: 20041201, end: 20050101
  2. NIZATIDINE [Concomitant]
  3. MEQUITAZINE (MEQUITAZINE) [Concomitant]
  4. ANTITUSSIVES AND EXPECTORANTS, COMBINATIONS [Concomitant]
  5. POVIDONE IODINE [Concomitant]
  6. ALL OTHER THERAPEUTIC PRODUCTS [Concomitant]
  7. TERBINAFINE HCL [Concomitant]
  8. DIFLUPREDNATE [Concomitant]

REACTIONS (1)
  - ELECTROCARDIOGRAM QT PROLONGED [None]
